FAERS Safety Report 13494563 (Version 1)
Quarter: 2017Q2

REPORT INFORMATION
  Report Type: Spontaneous
  Country: US (occurrence: US)
  Receive Date: 20170428
  Receipt Date: 20170428
  Transmission Date: 20170830
  Serious: Yes (Other)
  Sender: FDA-Public Use
  Company Number: US-STRIDES ARCOLAB LIMITED-2017SP005040

PATIENT

DRUGS (4)
  1. TACROLIMUS. [Suspect]
     Active Substance: TACROLIMUS
     Indication: INTERSTITIAL LUNG DISEASE
  2. PREDNISONE. [Concomitant]
     Active Substance: PREDNISONE
     Indication: UNDIFFERENTIATED CONNECTIVE TISSUE DISEASE
     Dosage: UNK
     Route: 065
  3. TACROLIMUS. [Suspect]
     Active Substance: TACROLIMUS
     Indication: UNDIFFERENTIATED CONNECTIVE TISSUE DISEASE
     Dosage: UNK
     Route: 065
  4. PREDNISONE. [Concomitant]
     Active Substance: PREDNISONE
     Indication: INTERSTITIAL LUNG DISEASE
     Dosage: REDUCTION IN DOSE (-12.5 MG)
     Route: 065

REACTIONS (3)
  - Off label use [Unknown]
  - Sinusitis [Recovered/Resolved]
  - Hypertension [Recovered/Resolved]
